FAERS Safety Report 4654598-9 (Version None)
Quarter: 2005Q2

REPORT INFORMATION
  Report Type: 
  Country: None (occurrence: None)
  Receive Date: 20050506
  Receipt Date: 20050110
  Transmission Date: 20051028
  Serious: Yes (Hospitalization)
  Sender: FDA-Public Use
  Company Number: GBWYE333412JAN05

PATIENT
  Sex: Female

DRUGS (12)
  1. ENBREL [Suspect]
     Indication: PSORIASIS
     Route: 058
     Dates: end: 20050104
  2. OMEPRAZOLE [Concomitant]
  3. PREDNISOLONE [Concomitant]
  4. PREDNISOLONE [Concomitant]
  5. ALENDRONATE SODIUM [Concomitant]
  6. AMLODIPINE [Concomitant]
  7. MOXONIDINE [Concomitant]
  8. MOXONIDINE [Concomitant]
  9. ATARAX [Concomitant]
  10. CLOPIDOGREL BISULFATE [Concomitant]
  11. CITALOPRAM [Concomitant]
  12. INSULIN [Concomitant]

REACTIONS (2)
  - CELLULITIS [None]
  - LOWER RESPIRATORY TRACT INFECTION [None]
